FAERS Safety Report 14598463 (Version 1)
Quarter: 2018Q1

REPORT INFORMATION
  Report Type: Spontaneous
  Country: US (occurrence: US)
  Receive Date: 20180302
  Receipt Date: 20180302
  Transmission Date: 20180509
  Serious: Yes (Other)
  Sender: FDA-Public Use
  Company Number: None

PATIENT
  Age: 73 Year
  Sex: Female
  Weight: 93.6 kg

DRUGS (17)
  1. GABAPENTIN. [Concomitant]
     Active Substance: GABAPENTIN
  2. RABEPRAZOLE [Concomitant]
     Active Substance: RABEPRAZOLE
  3. MRTAXALONE [Concomitant]
  4. VICODIN [Concomitant]
     Active Substance: ACETAMINOPHEN\HYDROCODONE BITARTRATE
  5. FLONASE [Concomitant]
     Active Substance: FLUTICASONE PROPIONATE
  6. VITAMIN B12 [Concomitant]
     Active Substance: CYANOCOBALAMIN
  7. PHYTOSTEROL [Concomitant]
  8. EXEMESTANE. [Suspect]
     Active Substance: EXEMESTANE
     Indication: BREAST CANCER
     Dosage: ?          QUANTITY:1 TABLET(S);?
     Route: 048
     Dates: start: 20160102, end: 20171108
  9. TOPROL XL [Concomitant]
     Active Substance: METOPROLOL SUCCINATE
  10. TAMOXIFEN [Suspect]
     Active Substance: TAMOXIFEN
  11. CPAP [Concomitant]
     Active Substance: DEVICE
  12. ASPIRIN. [Concomitant]
     Active Substance: ASPIRIN
  13. PROAIR HFA [Concomitant]
     Active Substance: ALBUTEROL SULFATE
  14. MICARDIS [Concomitant]
     Active Substance: TELMISARTAN
  15. CLONIDINE. [Concomitant]
     Active Substance: CLONIDINE
  16. TORSEMIDE. [Concomitant]
     Active Substance: TORSEMIDE
  17. TRIAMCINOLONE [Concomitant]
     Active Substance: TRIAMCINOLONE

REACTIONS (5)
  - Bone pain [None]
  - Rash pruritic [None]
  - Hypertension [None]
  - Alopecia [None]
  - Myalgia [None]

NARRATIVE: CASE EVENT DATE: 20171108
